FAERS Safety Report 9393186 (Version 1)
Quarter: 2013Q3

REPORT INFORMATION
  Report Type: Report from Study
  Country: CN (occurrence: CN)
  Receive Date: 20130710
  Receipt Date: 20130710
  Transmission Date: 20140515
  Serious: Yes (Death, Hospitalization)
  Sender: FDA-Public Use
  Company Number: CN-SANOFI-AVENTIS-200719572GDDC

PATIENT
  Age: 73 Year
  Sex: Male
  Weight: 80 kg

DRUGS (6)
  1. DOCETAXEL [Suspect]
     Indication: HORMONE-REFRACTORY PROSTATE CANCER
     Route: 042
     Dates: start: 20070718, end: 20070718
  2. DOCETAXEL [Suspect]
     Indication: HORMONE-REFRACTORY PROSTATE CANCER
     Route: 042
     Dates: start: 20070718, end: 20070718
  3. DOCETAXEL [Suspect]
     Indication: HORMONE-REFRACTORY PROSTATE CANCER
     Route: 042
     Dates: start: 20070919, end: 20070919
  4. DOCETAXEL [Suspect]
     Indication: HORMONE-REFRACTORY PROSTATE CANCER
     Route: 042
     Dates: start: 20070919, end: 20070919
  5. PREDNISONE [Suspect]
     Indication: HORMONE-REFRACTORY PROSTATE CANCER
     Route: 048
     Dates: start: 20070718, end: 20070919
  6. G-CSF [Concomitant]
     Indication: WHITE BLOOD CELL COUNT DECREASED
     Route: 058
     Dates: start: 20070928, end: 20070930

REACTIONS (10)
  - Interstitial lung disease [Fatal]
  - Respiratory failure [Fatal]
  - Circulatory collapse [Fatal]
  - Shock [Fatal]
  - Lung infection [Fatal]
  - Pyrexia [Fatal]
  - Cough [Fatal]
  - Dyspnoea [Fatal]
  - Atelectasis [Fatal]
  - Sepsis [Fatal]
